FAERS Safety Report 4970756-8 (Version None)
Quarter: 2006Q2

REPORT INFORMATION
  Report Type: 
  Country: None (occurrence: None)
  Receive Date: 20060406
  Receipt Date: 20060309
  Transmission Date: 20061013
  Serious: Yes (Other)
  Sender: FDA-Public Use
  Company Number: GBWYE802806JUL05

PATIENT
  Age: 41 Year
  Sex: Female

DRUGS (2)
  1. EFFEXOR [Suspect]
     Indication: BIPOLAR I DISORDER
     Dosage: POSSIBLY 37.5 MG OR 112.5 MG DAILY ORAL
     Route: 048
     Dates: start: 20030301, end: 20050701
  2. LAMOTRIGINE [Concomitant]

REACTIONS (4)
  - CAESAREAN SECTION [None]
  - DRUG EXPOSURE DURING PREGNANCY [None]
  - FAILED INDUCTION OF LABOUR [None]
  - PREGNANCY [None]
